FAERS Safety Report 8099372-9 (Version None)
Quarter: 2012Q1

REPORT INFORMATION
  Report Type: 
  Country: None (occurrence: None)
  Receive Date: 20120129
  Receipt Date: 20111017
  Transmission Date: 20120608
  Serious: No
  Sender: FDA-Public Use
  Company Number: US-ABBOTT-11P-163-0866905-00

PATIENT
  Sex: Male
  Weight: 87.168 kg

DRUGS (11)
  1. MAGNESIUM GLYCONATE [Concomitant]
     Indication: BLOOD MAGNESIUM DECREASED
  2. FOLIC ACID [Concomitant]
     Indication: CROHN'S DISEASE
  3. MULTI-VITAMIN [Concomitant]
     Indication: VITAMIN SUPPLEMENTATION
  4. HUMIRA [Suspect]
     Indication: CROHN'S DISEASE
     Dates: start: 20080101
  5. LOMOTIL [Concomitant]
     Indication: DIARRHOEA
  6. ADVAIR DISKUS 100/50 [Concomitant]
     Indication: CHRONIC OBSTRUCTIVE PULMONARY DISEASE
  7. VITAMIN B-12 [Concomitant]
     Indication: VITAMIN B12 DEFICIENCY
  8. PLAVIX [Concomitant]
     Indication: THROMBOSIS PROPHYLAXIS
  9. SPIRIVA [Concomitant]
     Indication: CHRONIC OBSTRUCTIVE PULMONARY DISEASE
  10. ZANTAC [Concomitant]
     Indication: ILL-DEFINED DISORDER
  11. LOPRESSOR [Concomitant]
     Indication: ATRIAL FIBRILLATION

REACTIONS (1)
  - HAEMOGLOBIN DECREASED [None]
